FAERS Safety Report 8490097-4 (Version None)
Quarter: 2012Q3

REPORT INFORMATION
  Report Type: 
  Country: None (occurrence: None)
  Receive Date: 20120705
  Receipt Date: 20120627
  Transmission Date: 20120928
  Serious: Yes (Death, Hospitalization)
  Sender: FDA-Public Use
  Company Number: JP-SANOFI-AVENTIS-2012SA039309

PATIENT
  Age: 59 Year
  Sex: Male
  Weight: 60 kg

DRUGS (9)
  1. PIOGLITAZONE HYDROCHLORIDE [Concomitant]
     Indication: DIABETES MELLITUS
     Dosage: STARTED AROUND FEB 2012
     Route: 065
     Dates: start: 20120201, end: 20120405
  2. ALL OTHER THERAPEUTIC PRODUCTS [Concomitant]
     Dosage: FREQUENCY: BEFORE EACH MEAL
     Route: 048
     Dates: start: 20120416
  3. ALL OTHER THERAPEUTIC PRODUCTS [Concomitant]
     Indication: HYPOPROTEINAEMIA
     Dosage: FREQUENCY: BEFORE EACH MEAL
     Route: 048
     Dates: start: 20120416
  4. LOPERAMIDE HYDROCHLORIDE [Concomitant]
     Dosage: FREQUENCY: MORNING AND EVENING
     Route: 048
     Dates: start: 20120425
  5. ZANTAC [Concomitant]
     Indication: DUODENAL ULCER
     Dosage: FREQUENCY: MORNING AND EVENING
     Route: 048
     Dates: start: 20120404
  6. AMARYL [Suspect]
     Indication: DIABETES MELLITUS
     Dosage: STRENGTH: 3 MG; FREQUENCY: 1.5 MG MORNING
     Route: 048
     Dates: start: 20120404, end: 20120507
  7. ALL OTHER THERAPEUTIC PRODUCTS [Concomitant]
     Dosage: FREQUENCY: BEFORE EACH MEAL
     Route: 048
     Dates: start: 20120416
  8. SITAGLIPTIN PHOSPHATE [Suspect]
     Indication: DIABETES MELLITUS
     Route: 048
     Dates: start: 20120404, end: 20120507
  9. ALL OTHER THERAPEUTIC PRODUCTS [Concomitant]
     Dosage: FREQUENCY: BEFORE EACH MEAL
     Route: 048
     Dates: start: 20120416

REACTIONS (4)
  - DEATH [None]
  - HYPOGLYCAEMIA [None]
  - DEPRESSED LEVEL OF CONSCIOUSNESS [None]
  - COLD SWEAT [None]
